FAERS Safety Report 17171271 (Version 1)
Quarter: 2019Q4

REPORT INFORMATION
  Report Type: Spontaneous
  Country: US (occurrence: US)
  Receive Date: 20191218
  Receipt Date: 20191218
  Transmission Date: 20200122
  Serious: No
  Sender: FDA-Public Use
  Company Number: US-SUPERNUS PHARMACEUTICALS, INC.-2019SUP00333

PATIENT
  Age: 77 Year
  Sex: Female
  Weight: 56.69 kg

DRUGS (4)
  1. TROKENDI XR [Suspect]
     Active Substance: TOPIRAMATE
     Indication: MIGRAINE PROPHYLAXIS
     Dosage: 100 MG, 1X/DAY IN THE MORNING
     Route: 048
     Dates: start: 20190510
  2. TROKENDI XR [Suspect]
     Active Substance: TOPIRAMATE
     Indication: MIGRAINE PROPHYLAXIS
     Dosage: 50 MG, 1X/DAY IN THE MORNINGS
     Route: 048
     Dates: start: 201904, end: 20190510
  3. BIOIDENTICAL COMPOUNDED HORMONE CREAM (LOW DOSE OF ESTRACE AND LITTLE [Concomitant]
  4. VITAMIN D3 [Concomitant]
     Active Substance: CHOLECALCIFEROL

REACTIONS (4)
  - Throat irritation [Not Recovered/Not Resolved]
  - Reaction to excipient [Recovering/Resolving]
  - Headache [Not Recovered/Not Resolved]
  - Intentional misuse of drug delivery system [Not Recovered/Not Resolved]

NARRATIVE: CASE EVENT DATE: 201905
